FAERS Safety Report 24302509 (Version 4)
Quarter: 2024Q4

REPORT INFORMATION
  Report Type: Spontaneous
  Country: CR (occurrence: CR)
  Receive Date: 20240910
  Receipt Date: 20241227
  Transmission Date: 20250115
  Serious: No
  Sender: PFIZER
  Company Number: CR-PFIZER INC-PV202400111172

PATIENT
  Age: 35 Year
  Sex: Male

DRUGS (1)
  1. ENBREL [Suspect]
     Active Substance: ETANERCEPT
     Dosage: 50 MG, WEEKLY

REACTIONS (2)
  - Injection site irritation [Unknown]
  - Lack of application site rotation [Unknown]
